FAERS Safety Report 9625598 (Version 2)
Quarter: 2013Q4

REPORT INFORMATION
  Report Type: Spontaneous
  Country: US (occurrence: US)
  Receive Date: 20131016
  Receipt Date: 20131226
  Transmission Date: 20140711
  Serious: Yes (Hospitalization)
  Sender: FDA-Public Use
  Company Number: US-BAYER-2013-124954

PATIENT
  Age: 54 Year
  Sex: Female
  Weight: 77.1 kg

DRUGS (11)
  1. YASMIN [Suspect]
     Dosage: UNK
     Dates: start: 20040522, end: 200809
  2. OCELLA [Suspect]
     Dosage: UNK
     Dates: start: 20080918, end: 201009
  3. CALCIUM [Concomitant]
     Indication: BONE DENSITY ABNORMAL
     Dosage: UNK UNK, EVERYDAY
  4. ASPIRIN [Concomitant]
     Dosage: UNK UNK, EVERYDAY
  5. MAGNESIUM [Concomitant]
     Dosage: UNK UNK, EVERYDAY
  6. B12 [Concomitant]
     Dosage: UNK UNK, EVERYDAY
  7. MULTIVITAMIN [Concomitant]
     Dosage: UNK UNK, EVERYDAY
  8. NORTRIPTYLINE [Concomitant]
     Indication: HEADACHE
     Dosage: UNK UNK, EVERYDAY
  9. GABAPENTIN [Concomitant]
     Indication: BACK PAIN
     Dosage: 300 MG, EVERYDAY
     Dates: start: 20101004
  10. PREVACID [Concomitant]
     Indication: GASTROOESOPHAGEAL REFLUX DISEASE
     Dosage: 30 MG, EVERYDAY
     Dates: start: 20101004
  11. NEURONTIN [Concomitant]
     Dosage: UNK
     Dates: start: 20101004

REACTIONS (9)
  - Pulmonary embolism [None]
  - Deep vein thrombosis [None]
  - Pain [None]
  - Injury [None]
  - General physical health deterioration [None]
  - Emotional distress [None]
  - Anxiety [None]
  - Anhedonia [None]
  - Pain [None]
